FAERS Safety Report 12309207 (Version 3)
Quarter: 2016Q2

REPORT INFORMATION
  Report Type: Spontaneous
  Country: US (occurrence: US)
  Receive Date: 20160427
  Receipt Date: 20160629
  Transmission Date: 20160815
  Serious: No
  Sender: FDA-Public Use
  Company Number: US-ASTRAZENECA-2016SE45213

PATIENT
  Age: 26057 Day
  Sex: Female
  Weight: 95.3 kg

DRUGS (7)
  1. SYMBICORT [Suspect]
     Active Substance: BUDESONIDE\FORMOTEROL FUMARATE DIHYDRATE
     Indication: ASTHMA
     Dosage: 160/4.5 MCG,2 PUFFS TWO TIMES A DAY
     Route: 055
     Dates: start: 201307
  2. NEXIUM [Suspect]
     Active Substance: ESOMEPRAZOLE MAGNESIUM
     Indication: GASTROOESOPHAGEAL REFLUX DISEASE
     Route: 048
     Dates: start: 2012, end: 20160205
  3. ASPIRIN. [Concomitant]
     Active Substance: ASPIRIN
     Indication: NEOPLASM MALIGNANT
     Route: 048
     Dates: start: 200308
  4. PROAIR HFA [Concomitant]
     Active Substance: ALBUTEROL SULFATE
     Indication: ASTHMA
     Dosage: FOUR TIMES A DAY, AS REQUIRED
     Route: 055
  5. NEXIUM [Suspect]
     Active Substance: ESOMEPRAZOLE MAGNESIUM
     Indication: GASTROOESOPHAGEAL REFLUX DISEASE
     Route: 048
     Dates: start: 20160205, end: 201604
  6. VITAMIN B6 [Concomitant]
     Active Substance: PYRIDOXINE HYDROCHLORIDE
     Indication: CARPAL TUNNEL DECOMPRESSION
     Route: 048
     Dates: start: 2012
  7. VITAMIN D3 [Concomitant]
     Active Substance: CHOLECALCIFEROL
     Indication: VITAMIN D DEFICIENCY
     Route: 048
     Dates: start: 2008

REACTIONS (8)
  - Drug dose omission [Unknown]
  - Fatigue [Unknown]
  - Stomatitis [Unknown]
  - Intentional product misuse [Unknown]
  - Device malfunction [Unknown]
  - Lip swelling [Unknown]
  - Device failure [Unknown]
  - Back pain [Unknown]

NARRATIVE: CASE EVENT DATE: 20160205
